FAERS Safety Report 21891937 (Version 2)
Quarter: 2023Q1

REPORT INFORMATION
  Report Type: Spontaneous
  Country: NO (occurrence: NO)
  Receive Date: 20230120
  Receipt Date: 20230124
  Transmission Date: 20230418
  Serious: Yes (Hospitalization, Disabling, Other)
  Sender: FDA-Public Use
  Company Number: NO-STADA-267377

PATIENT
  Age: 67 Year
  Sex: Male
  Weight: 97 kg

DRUGS (9)
  1. LENALIDOMIDE [Suspect]
     Active Substance: LENALIDOMIDE
     Indication: Follicular lymphoma
     Dosage: DAYS 1 TO 21 OF EACH 28-DAY CYCLE FOR 12 CYCLES
     Route: 048
     Dates: start: 20221025, end: 20221028
  2. TAFASITAMAB [Suspect]
     Active Substance: TAFASITAMAB
     Indication: Follicular lymphoma
     Dosage: CYCLES 1 TO ? THEN DAYS 1 AND 15 FOR CYCLES 4 TO 12
     Route: 042
     Dates: start: 20221025
  3. ACETAMINOPHEN [Concomitant]
     Active Substance: ACETAMINOPHEN
     Indication: Product used for unknown indication
     Dates: start: 20221025, end: 20221025
  4. EVUSHELD [Concomitant]
     Active Substance: CILGAVIMAB\TIXAGEVIMAB
     Indication: Product used for unknown indication
     Dates: start: 20221020, end: 20221020
  5. ASPIRIN [Concomitant]
     Active Substance: ASPIRIN
     Indication: Product used for unknown indication
  6. RITUXIMAB [Concomitant]
     Active Substance: RITUXIMAB
     Indication: Follicular lymphoma
     Dosage: 375 MG/M2 (832.5 MG) (WEEKLY FOR CYCLE 1 THEN DAY 1 OF CYCLES 2 TO 5)
     Route: 042
     Dates: start: 20221026
  7. HUMALOG [Concomitant]
     Active Substance: INSULIN LISPRO
     Indication: Product used for unknown indication
     Dates: start: 20220909
  8. INSULIN HUMAN [Concomitant]
     Active Substance: INSULIN HUMAN
     Indication: Product used for unknown indication
     Dates: start: 20220909
  9. ALLOPURINOL [Concomitant]
     Active Substance: ALLOPURINOL
     Indication: Product used for unknown indication

REACTIONS (3)
  - Cytokine release syndrome [Recovered/Resolved]
  - Sinus bradycardia [Not Recovered/Not Resolved]
  - Off label use [Unknown]

NARRATIVE: CASE EVENT DATE: 20221028
